FAERS Safety Report 7356778-0 (Version None)
Quarter: 2011Q1

REPORT INFORMATION
  Report Type: 
  Country: None (occurrence: None)
  Receive Date: 20110316
  Receipt Date: 20110210
  Transmission Date: 20110831
  Serious: Yes (Other)
  Sender: FDA-Public Use
  Company Number: US-BAYER-201015491NA

PATIENT
  Sex: Female

DRUGS (24)
  1. GADOLINIUM IN UNSPECIFIED DRUG [Suspect]
     Dosage: UNK
     Dates: start: 20000908, end: 20000908
  2. GADOLINIUM IN UNSPECIFIED DRUG [Suspect]
     Dosage: UNK
     Dates: start: 20001019, end: 20001019
  3. GADOLINIUM IN UNSPECIFIED DRUG [Suspect]
     Dosage: UNK
     Dates: start: 20040521, end: 20040521
  4. GADOLINIUM IN UNSPECIFIED DRUG [Suspect]
     Dosage: UNK
     Dates: start: 20070624, end: 20070624
  5. GADOLINIUM IN UNSPECIFIED DRUG [Suspect]
     Dosage: UNK
     Dates: start: 20071218, end: 20071218
  6. GADOLINIUM IN UNSPECIFIED DRUG [Suspect]
     Dosage: UNK
     Dates: start: 20080813, end: 20080813
  7. VITAMINS NOS [Concomitant]
  8. BLOOD PRESSURE MEDICATION (NOS) [Concomitant]
  9. GADOLINIUM IN UNSPECIFIED DRUG [Suspect]
     Dosage: UNK
     Dates: start: 20041121, end: 20041121
  10. MAGNEVIST [Suspect]
  11. GADOLINIUM IN UNSPECIFIED DRUG [Suspect]
     Dosage: UNK
     Dates: start: 20020330, end: 20020330
  12. OMNISCAN [Suspect]
     Indication: NUCLEAR MAGNETIC RESONANCE IMAGING BRAIN
     Dates: start: 20090903, end: 20090903
  13. IMMUNOSUPPRESSIVE AGENTS [Concomitant]
  14. GADOLINIUM IN UNSPECIFIED DRUG [Suspect]
     Dosage: UNK
     Dates: start: 20060306, end: 20060306
  15. OMNISCAN [Suspect]
     Indication: NUCLEAR MAGNETIC RESONANCE IMAGING
     Dates: start: 20050811, end: 20050811
  16. MULTIHANCE [Suspect]
     Indication: NUCLEAR MAGNETIC RESONANCE IMAGING
  17. MAGNEVIST [Suspect]
     Indication: NUCLEAR MAGNETIC RESONANCE IMAGING
     Dates: start: 20070807, end: 20070807
  18. IRON SUPPLEMENT [Concomitant]
  19. ANTIBIOTICS [Concomitant]
  20. ANTIINFLAMMATORY/ANTIRHEUMATIC PRODUCTS [Concomitant]
  21. UNCODEABLE ^UNKNOWN MANUFACTURER^ [Concomitant]
  22. OPTIMARK [Suspect]
     Indication: NUCLEAR MAGNETIC RESONANCE IMAGING
  23. PROHANCE [Suspect]
     Indication: NUCLEAR MAGNETIC RESONANCE IMAGING
  24. UNCODEABLE ^UNCLASSIFIABLE^ [Concomitant]

REACTIONS (19)
  - PAIN OF SKIN [None]
  - SKIN EXFOLIATION [None]
  - FIBROSIS [None]
  - JOINT SWELLING [None]
  - PAIN [None]
  - RENAL INJURY [None]
  - SKIN FIBROSIS [None]
  - GENERAL PHYSICAL HEALTH DETERIORATION [None]
  - SKIN INDURATION [None]
  - DEFORMITY [None]
  - SKIN TIGHTNESS [None]
  - SCAR [None]
  - ERYTHEMA [None]
  - JOINT STIFFNESS [None]
  - OEDEMA PERIPHERAL [None]
  - MOBILITY DECREASED [None]
  - DISCOMFORT [None]
  - NEPHROGENIC SYSTEMIC FIBROSIS [None]
  - SKIN HYPERTROPHY [None]
